FAERS Safety Report 8161583-1 (Version None)
Quarter: 2012Q1

REPORT INFORMATION
  Report Type: 
  Country: None (occurrence: None)
  Receive Date: 20120224
  Receipt Date: 20120216
  Transmission Date: 20120608
  Serious: Yes (Other)
  Sender: FDA-Public Use
  Company Number: US-GENZYME-THYM-1003135

PATIENT
  Age: 57 Year
  Sex: Female

DRUGS (2)
  1. THYMOGLOBULIN [Suspect]
     Indication: KIDNEY TRANSPLANT REJECTION
     Dosage: UNK
     Route: 042
  2. CORTICOSTEROID NOS [Concomitant]
     Indication: KIDNEY TRANSPLANT REJECTION
     Dosage: UNK
     Route: 065

REACTIONS (2)
  - RESPIRATORY DISTRESS [None]
  - KIDNEY TRANSPLANT REJECTION [None]
